FAERS Safety Report 8713122 (Version 7)
Quarter: 2013Q1

REPORT INFORMATION
  Report Type: Report from Study
  Country: US (occurrence: US)
  Receive Date: 20120808
  Receipt Date: 20130314
  Transmission Date: 20140127
  Serious: Yes (Death, Other)
  Sender: FDA-Public Use
  Company Number: US-ROCHE-1086352

PATIENT
  Age: 56 None
  Sex: Male
  Weight: 108.96 kg

DRUGS (8)
  1. ZELBORAF [Suspect]
     Indication: METASTATIC MALIGNANT MELANOMA
     Dosage: FOR TWO WEEKS
     Route: 048
     Dates: start: 2012, end: 201207
  2. ZELBORAF [Suspect]
     Route: 048
     Dates: start: 201207
  3. ZELBORAF [Suspect]
     Route: 048
     Dates: start: 20120724
  4. ZELBORAF [Suspect]
     Route: 048
     Dates: start: 20120701
  5. ZELBORAF [Suspect]
     Route: 048
     Dates: start: 201206
  6. METOPROLOL [Concomitant]
     Indication: HYPERTENSION
     Route: 048
  7. DEXAMETHASONE [Concomitant]
     Route: 048
  8. LEVOFLOXACIN [Concomitant]
     Indication: NASOPHARYNGITIS
     Route: 065
     Dates: start: 20130103

REACTIONS (22)
  - Respiratory failure [Fatal]
  - Blister [Recovered/Resolved]
  - Rash [Unknown]
  - Sunburn [Recovered/Resolved]
  - Purpura [Not Recovered/Not Resolved]
  - Fatigue [Unknown]
  - Rash macular [Not Recovered/Not Resolved]
  - Rash morbilliform [Not Recovered/Not Resolved]
  - Decreased appetite [Recovered/Resolved]
  - Feeling abnormal [Recovered/Resolved]
  - Alopecia [Not Recovered/Not Resolved]
  - Acne [Unknown]
  - Rash [Unknown]
  - Acrochordon [Unknown]
  - Nasopharyngitis [Not Recovered/Not Resolved]
  - Fatigue [Not Recovered/Not Resolved]
  - Rash [Recovered/Resolved]
  - Rash [Recovered/Resolved]
  - Weight increased [Not Recovered/Not Resolved]
  - Skin burning sensation [Recovered/Resolved]
  - Squamous cell carcinoma of skin [Not Recovered/Not Resolved]
  - Disease progression [Fatal]
